FAERS Safety Report 9580680 (Version 3)
Quarter: 2013Q4

REPORT INFORMATION
  Report Type: Spontaneous
  Country: US (occurrence: US)
  Receive Date: 20131002
  Receipt Date: 20131101
  Transmission Date: 20140711
  Serious: No
  Sender: FDA-Public Use
  Company Number: US-009507513-1310USA000691

PATIENT
  Age: 52 Year
  Sex: Female
  Weight: 86.17 kg

DRUGS (7)
  1. CLARITIN-D-12 [Suspect]
     Indication: SINUS CONGESTION
     Dosage: 5 MG, Q12H
     Route: 048
     Dates: start: 20130919, end: 20130921
  2. CLARITIN-D-12 [Suspect]
     Indication: EYE PRURITUS
  3. CLARITIN-D-12 [Suspect]
     Indication: LACRIMATION INCREASED
  4. CLARITIN-D-12 [Suspect]
     Indication: SINUS HEADACHE
  5. FLUTICASONE [Concomitant]
     Indication: SINUSITIS
     Dosage: UNK, UNKNOWN
  6. ORACEA [Concomitant]
     Indication: ROSACEA
     Dosage: UNK, UNKNOWN
  7. FINACEA [Concomitant]
     Indication: ROSACEA
     Dosage: UNK, UNKNOWN

REACTIONS (1)
  - Drug effect decreased [Unknown]
